FAERS Safety Report 12544738 (Version 7)
Quarter: 2019Q1

REPORT INFORMATION
  Report Type: Spontaneous
  Country: US (occurrence: US)
  Receive Date: 20160711
  Receipt Date: 20190122
  Transmission Date: 20190417
  Serious: No
  Sender: FDA-Public Use
  Company Number: US-PFIZER INC-2016323099

PATIENT
  Age: 7 Year
  Sex: Male

DRUGS (3)
  1. GENOTROPIN [Suspect]
     Active Substance: SOMATROPIN
     Dosage: 1 MG, 1X/DAY (EVERY AFTERNOON OR EVENING)
     Route: 058
     Dates: start: 20160729
  2. GENOTROPIN [Suspect]
     Active Substance: SOMATROPIN
     Indication: GROWTH HORMONE DEFICIENCY
     Dosage: 0.6 MG, 1X/DAY
     Route: 058
  3. GENOTROPIN [Suspect]
     Active Substance: SOMATROPIN
     Dosage: 0.8 MG, 1X/DAY (AT BEDTIME)
     Route: 058

REACTIONS (10)
  - Headache [Unknown]
  - Myalgia [Unknown]
  - Tooth infection [Unknown]
  - Arthropathy [Unknown]
  - Gastric disorder [Unknown]
  - Gait disturbance [Unknown]
  - Full blood count decreased [Unknown]
  - Pain in extremity [Unknown]
  - Nasopharyngitis [Unknown]
  - Product dose omission [Unknown]
